FAERS Safety Report 15770634 (Version 1)
Quarter: 2018Q4

REPORT INFORMATION
  Report Type: Spontaneous
  Country: GB (occurrence: GB)
  Receive Date: 20181228
  Receipt Date: 20181228
  Transmission Date: 20190205
  Serious: Yes (Other)
  Sender: FDA-Public Use
  Company Number: PHHY2018GB005529

PATIENT
  Age: 78 Year
  Sex: Female

DRUGS (1)
  1. ZOLEDRONIC ACID [Suspect]
     Active Substance: ZOLEDRONIC ACID
     Indication: OSTEITIS DEFORMANS
     Dosage: 5 MG, UNK
     Route: 042

REACTIONS (7)
  - Nausea [Recovering/Resolving]
  - Iridocyclitis [Recovering/Resolving]
  - Cataract [Recovered/Resolved]
  - Vomiting [Recovering/Resolving]
  - Ocular hyperaemia [Recovered/Resolved]
  - Product use in unapproved indication [Unknown]
  - Iritis [Recovered/Resolved]
